FAERS Safety Report 19318116 (Version 2)
Quarter: 2021Q2

REPORT INFORMATION
  Report Type: Report from Study
  Country: US (occurrence: US)
  Receive Date: 20210527
  Receipt Date: 20210610
  Transmission Date: 20210717
  Serious: Yes (Hospitalization, Other)
  Sender: FDA-Public Use
  Company Number: US-JNJFOC-20210549686

PATIENT
  Sex: Female
  Weight: 70.5 kg

DRUGS (4)
  1. SILDENAFIL CITRATE. [Concomitant]
     Active Substance: SILDENAFIL CITRATE
  2. LETAIRIS [Concomitant]
     Active Substance: AMBRISENTAN
  3. REVATIO [Concomitant]
     Active Substance: SILDENAFIL CITRATE
  4. EPOPROSTENOL SODIUM. [Suspect]
     Active Substance: EPOPROSTENOL SODIUM
     Indication: PULMONARY ARTERIAL HYPERTENSION
     Route: 042

REACTIONS (7)
  - Diarrhoea [Unknown]
  - Catheter site erythema [Recovered/Resolved]
  - Surgery [Unknown]
  - Rash [Unknown]
  - Medical device site discharge [Recovered/Resolved]
  - Vascular device infection [Unknown]
  - Pain in jaw [Unknown]
